FAERS Safety Report 11029722 (Version 3)
Quarter: 2015Q2

REPORT INFORMATION
  Report Type: Spontaneous
  Country: IE (occurrence: IE)
  Receive Date: 20150415
  Receipt Date: 20150512
  Transmission Date: 20150821
  Serious: Yes (Other)
  Sender: FDA-Public Use
  Company Number: IE-BAYER-2015-129867

PATIENT
  Age: 40 Year
  Sex: Female

DRUGS (1)
  1. MIRENA [Suspect]
     Active Substance: LEVONORGESTREL
     Indication: CONTRACEPTION
     Dosage: 20 MCG/24HR, CONT
     Route: 015
     Dates: start: 2011

REACTIONS (6)
  - Hypomenorrhoea [None]
  - Drug ineffective [None]
  - Pregnancy with contraceptive device [None]
  - Vaginal haemorrhage [None]
  - Mental disorder [None]
  - Lower respiratory tract infection [None]

NARRATIVE: CASE EVENT DATE: 2013
